FAERS Safety Report 6064620-3 (Version None)
Quarter: 2009Q1

REPORT INFORMATION
  Report Type: 
  Country: None (occurrence: None)
  Receive Date: 20090204
  Receipt Date: 20080125
  Transmission Date: 20090719
  Serious: No
  Sender: FDA-Public Use
  Company Number: A0698326A

PATIENT
  Age: 59 Year
  Sex: Female

DRUGS (7)
  1. ARIXTRA [Suspect]
     Dosage: 2.5MG PER DAY
     Route: 058
     Dates: start: 20071106
  2. PROTONIX [Concomitant]
  3. KEPPRA [Concomitant]
  4. TOPAMAX [Concomitant]
  5. CYMBALTA [Concomitant]
  6. METOPROLOL TARTRATE [Concomitant]
  7. ASPIRIN [Concomitant]

REACTIONS (3)
  - CONTUSION [None]
  - PAIN [None]
  - PRODUCT QUALITY ISSUE [None]
